FAERS Safety Report 7020141-2 (Version None)
Quarter: 2010Q3

REPORT INFORMATION
  Report Type: 
  Country: None (occurrence: None)
  Receive Date: 20100929
  Receipt Date: 20100920
  Transmission Date: 20110219
  Serious: Yes (Other)
  Sender: FDA-Public Use
  Company Number: US-ELI_LILLY_AND_COMPANY-US201009006281

PATIENT
  Age: 55 Year
  Sex: Female
  Weight: 77.098 kg

DRUGS (1)
  1. EFFIENT [Suspect]
     Dosage: 60 MG, OTHER
     Dates: start: 20100918, end: 20100918

REACTIONS (3)
  - COLITIS ISCHAEMIC [None]
  - GASTROINTESTINAL HAEMORRHAGE [None]
  - RECTAL HAEMORRHAGE [None]
